FAERS Safety Report 15936493 (Version 1)
Quarter: 2019Q1

REPORT INFORMATION
  Report Type: Spontaneous
  Country: US (occurrence: US)
  Receive Date: 20190207
  Receipt Date: 20190207
  Transmission Date: 20190417
  Serious: Yes (Hospitalization, Disabling)
  Sender: FDA-Public Use
  Company Number: None

PATIENT
  Age: 30 Year
  Sex: Female
  Weight: 74.7 kg

DRUGS (1)
  1. CIPROFLOXACIN. [Suspect]
     Active Substance: CIPROFLOXACIN
     Indication: URINARY TRACT INFECTION
     Dosage: ?          QUANTITY:1 TABLET(S);?
     Route: 048
     Dates: start: 20181022, end: 20181022

REACTIONS (8)
  - Asthenia [None]
  - Hypoaesthesia [None]
  - Chest pain [None]
  - Diarrhoea [None]
  - Arthropathy [None]
  - Dyspnoea [None]
  - Neuralgia [None]
  - Fatigue [None]

NARRATIVE: CASE EVENT DATE: 20181022
